FAERS Safety Report 18388327 (Version 2)
Quarter: 2020Q4

REPORT INFORMATION
  Report Type: Report from Study
  Country: US (occurrence: US)
  Receive Date: 20201015
  Receipt Date: 20201126
  Transmission Date: 20210114
  Serious: No
  Sender: FDA-Public Use
  Company Number: NVSC2020US278093

PATIENT
  Sex: Female

DRUGS (1)
  1. KISQALI [Suspect]
     Active Substance: RIBOCICLIB
     Indication: PRODUCT USED FOR UNKNOWN INDICATION
     Route: 048

REACTIONS (4)
  - Fatigue [Unknown]
  - Dyspnoea [Unknown]
  - Palpitations [Unknown]
  - Nausea [Unknown]
